FAERS Safety Report 8740850 (Version 5)
Quarter: 2013Q4

REPORT INFORMATION
  Report Type: Spontaneous
  Country: US (occurrence: US)
  Receive Date: 20120823
  Receipt Date: 20131106
  Transmission Date: 20140711
  Serious: Yes (Hospitalization, Other)
  Sender: FDA-Public Use
  Company Number: US-009507513-0701USA00400

PATIENT
  Age: 68 Year
  Sex: Female
  Weight: 73.47 kg

DRUGS (14)
  1. JANUVIA [Suspect]
     Indication: TYPE 2 DIABETES MELLITUS
     Dosage: 50 MG, QD
     Route: 048
     Dates: start: 200612
  2. JANUVIA [Suspect]
     Dosage: 50 MG, QD
     Route: 048
     Dates: start: 20120720
  3. ACTOS [Concomitant]
  4. AMARYL [Concomitant]
  5. BENICAR [Concomitant]
  6. NEXIUM [Concomitant]
  7. ASPIRIN [Concomitant]
  8. PROZAC [Concomitant]
  9. FIBERCON [Concomitant]
  10. ZETIA [Concomitant]
     Route: 048
  11. OMEGA-3 MARINE TRIGLYCERIDES [Concomitant]
  12. TYLENOL [Concomitant]
  13. CHOLECALCIFEROL [Concomitant]
  14. ASPIRIN [Concomitant]

REACTIONS (29)
  - Small intestinal resection [Recovering/Resolving]
  - Liver operation [Recovering/Resolving]
  - Blood glucose increased [Recovering/Resolving]
  - Rhinorrhoea [Recovering/Resolving]
  - Cough [Recovering/Resolving]
  - Product quality issue [Unknown]
  - Weight increased [Not Recovered/Not Resolved]
  - Constipation [Unknown]
  - Cholelithiasis [Not Recovered/Not Resolved]
  - Ligament rupture [Unknown]
  - Fall [Unknown]
  - Humerus fracture [Unknown]
  - Foot fracture [Unknown]
  - Urinary tract infection [Unknown]
  - Vomiting [Recovered/Resolved]
  - Nausea [Recovered/Resolved]
  - Pyrexia [Recovered/Resolved]
  - Open reduction of fracture [Unknown]
  - Fall [Unknown]
  - Upper limb fracture [Unknown]
  - Small intestine carcinoma metastatic [Recovering/Resolving]
  - Hepatic cancer [Recovering/Resolving]
  - Cholecystectomy [Unknown]
  - Gastrointestinal haemorrhage [Unknown]
  - Anaemia [Unknown]
  - Hypersensitivity [Unknown]
  - Hepatic mass [Not Recovered/Not Resolved]
  - Drug hypersensitivity [Unknown]
  - Corneal dystrophy [Unknown]
